FAERS Safety Report 17868762 (Version 1)
Quarter: 2020Q2

REPORT INFORMATION
  Report Type: Spontaneous
  Country: US (occurrence: US)
  Receive Date: 20200607
  Receipt Date: 20200607
  Transmission Date: 20200714
  Serious: Yes (Other)
  Sender: FDA-Public Use
  Company Number: US-SPECGX-T202001036

PATIENT
  Weight: 4 kg

DRUGS (2)
  1. MORPHINE [Suspect]
     Active Substance: MORPHINE
     Indication: PAIN
     Dosage: 0.15 MG/KG
     Route: 065
  2. MORPHINE [Suspect]
     Active Substance: MORPHINE
     Indication: AGITATION

REACTIONS (3)
  - Cardiac arrest [Unknown]
  - Product use issue [Unknown]
  - Apnoea [Unknown]
